FAERS Safety Report 6939399-0 (Version None)
Quarter: 2010Q3

REPORT INFORMATION
  Report Type: 
  Country: None (occurrence: None)
  Receive Date: 20100824
  Receipt Date: 20100610
  Transmission Date: 20110219
  Serious: No
  Sender: FDA-Public Use
  Company Number: A0864309A

PATIENT

DRUGS (1)
  1. ARZERRA [Suspect]
     Route: 042
     Dates: start: 20100610

REACTIONS (2)
  - CHILLS [None]
  - PYREXIA [None]
